FAERS Safety Report 6242372-1 (Version None)
Quarter: 2009Q2

REPORT INFORMATION
  Report Type: 
  Country: None (occurrence: None)
  Receive Date: 20090622
  Receipt Date: 20090622
  Transmission Date: 20091009
  Serious: No
  Sender: FDA-Public Use
  Company Number: None

PATIENT
  Sex: Female

DRUGS (1)
  1. GLUCOPHAGE XR [Suspect]
     Indication: DIABETES MELLITUS
     Dosage: ONE TABLET BY MOUTH DAILY
     Route: 048

REACTIONS (2)
  - DIARRHOEA [None]
  - PRODUCT SUBSTITUTION ISSUE [None]
